FAERS Safety Report 18095044 (Version 2)
Quarter: 2020Q4

REPORT INFORMATION
  Report Type: Spontaneous
  Country: US (occurrence: US)
  Receive Date: 20200730
  Receipt Date: 20201030
  Transmission Date: 20210113
  Serious: No
  Sender: FDA-Public Use
  Company Number: US-AKCEA THERAPEUTICS-2020IS001231

PATIENT
  Age: 75 Year
  Sex: Male

DRUGS (8)
  1. ISSD (INTEGRATED SYRINGE SAFETY DEVICE) [Suspect]
     Active Substance: DEVICE
  2. TAMSULOSIN [Suspect]
     Active Substance: TAMSULOSIN
     Route: 065
  3. DULERA [Concomitant]
     Active Substance: FORMOTEROL FUMARATE DIHYDRATE\MOMETASONE FUROATE
     Route: 065
  4. TEGSEDI [Suspect]
     Active Substance: INOTERSEN SODIUM
     Indication: HEREDITARY NEUROPATHIC AMYLOIDOSIS
     Route: 058
     Dates: start: 20200220
  5. ELIQUIS [Concomitant]
     Active Substance: APIXABAN
     Route: 065
  6. FINASTERIDE. [Concomitant]
     Active Substance: FINASTERIDE
     Route: 065
  7. SYMBICORT [Concomitant]
     Active Substance: BUDESONIDE\FORMOTEROL FUMARATE DIHYDRATE
     Route: 065
  8. LASIX [Concomitant]
     Active Substance: FUROSEMIDE
     Route: 065

REACTIONS (13)
  - Platelet aggregation test [Unknown]
  - Urine leukocyte esterase positive [Unknown]
  - Blood urine present [Unknown]
  - Glomerular filtration rate decreased [Unknown]
  - Red blood cells urine positive [Unknown]
  - Platelet count decreased [Not Recovered/Not Resolved]
  - Urine protein/creatinine ratio increased [Unknown]
  - Urine abnormality [Unknown]
  - White blood cells urine positive [Unknown]
  - Urinary sediment present [Unknown]
  - Blood creatinine increased [Unknown]
  - Bacterial test positive [Unknown]
  - Protein urine present [Unknown]

NARRATIVE: CASE EVENT DATE: 20200602
